FAERS Safety Report 13524176 (Version 1)
Quarter: 2017Q2

REPORT INFORMATION
  Report Type: Spontaneous
  Country: US (occurrence: US)
  Receive Date: 20170508
  Receipt Date: 20170508
  Transmission Date: 20170830
  Serious: Yes (Hospitalization)
  Sender: FDA-Public Use
  Company Number: US-TEVA-752479USA

PATIENT
  Age: 72 Year
  Sex: Male

DRUGS (4)
  1. OXALIPLATIN INJECTION 50MG/10 MLAND100MG/20ML [Suspect]
     Active Substance: OXALIPLATIN
     Route: 065
  2. IMODIUM [Concomitant]
     Active Substance: LOPERAMIDE HYDROCHLORIDE
     Dosage: AS NEEDED
  3. SIMVASTATIN. [Concomitant]
     Active Substance: SIMVASTATIN
  4. OXALIPLATIN INJECTION 50MG/10 MLAND100MG/20ML [Suspect]
     Active Substance: OXALIPLATIN
     Route: 065

REACTIONS (5)
  - Immune tolerance induction [Unknown]
  - Dyspnoea [Recovered/Resolved]
  - Flushing [Recovered/Resolved]
  - Hypersensitivity [Recovered/Resolved]
  - Cough [Recovered/Resolved]

NARRATIVE: CASE EVENT DATE: 2017
